FAERS Safety Report 5806313-0 (Version None)
Quarter: 2008Q3

REPORT INFORMATION
  Report Type: 
  Country: None (occurrence: None)
  Receive Date: 20080710
  Receipt Date: 20080703
  Transmission Date: 20090109
  Serious: Yes (Disabling, Other)
  Sender: FDA-Public Use
  Company Number: GB-ABBOTT-08P-167-0461226-00

PATIENT
  Age: 35 Year
  Sex: Female

DRUGS (1)
  1. ERYTHROMYCIN [Suspect]
     Indication: DIARRHOEA
     Route: 048
     Dates: start: 20070502, end: 20070503

REACTIONS (3)
  - ERYTHEMA [None]
  - PAIN [None]
  - RASH PUSTULAR [None]
